FAERS Safety Report 10862858 (Version 3)
Quarter: 2015Q1

REPORT INFORMATION
  Report Type: Report from Study
  Country: GR (occurrence: GR)
  Receive Date: 20150224
  Receipt Date: 20150305
  Transmission Date: 20150721
  Serious: Yes (Hospitalization)
  Sender: FDA-Public Use
  Company Number: GR-MERCK-1502GRC003959

PATIENT
  Age: 51 Year
  Sex: Female
  Weight: 80 kg

DRUGS (11)
  1. PEMBROLIZUMAB. [Suspect]
     Active Substance: PEMBROLIZUMAB
     Indication: NON-SMALL CELL LUNG CANCER
     Dosage: 2 MG/KG, Q3W
     Route: 042
     Dates: start: 20141208, end: 20141229
  2. BECLONEB [Concomitant]
     Indication: DYSPNOEA
     Dosage: 800 MICROGRAM, BID, FORMULATION: INHALANT
     Route: 055
     Dates: start: 20140612
  3. LOBIVON [Concomitant]
     Active Substance: NEBIVOLOL HYDROCHLORIDE
     Indication: HYPERTENSION
     Dosage: 5 MG, QD, FORMULATION: PILL
     Route: 048
     Dates: start: 20141202
  4. ZIRTEK [Concomitant]
     Active Substance: CETIRIZINE HYDROCHLORIDE
     Indication: HOUSE DUST ALLERGY
     Dosage: TOTAL DAILY DOSE: 10 MG, PRN, FORMULATION: PILL
     Route: 048
     Dates: start: 20140528
  5. ZIRTEK [Concomitant]
     Active Substance: CETIRIZINE HYDROCHLORIDE
     Indication: SEASONAL ALLERGY
  6. ESCITALOPRAM [Concomitant]
     Active Substance: ESCITALOPRAM OXALATE
     Indication: DEPRESSION
     Dosage: 20 MG, QD, FORMULATION: PILL
     Route: 048
     Dates: start: 20140606
  7. PEMBROLIZUMAB. [Suspect]
     Active Substance: PEMBROLIZUMAB
     Dosage: 2 MG/KG, Q3W
     Route: 042
     Dates: start: 20150120, end: 20150120
  8. CONTROLOC [Concomitant]
     Active Substance: PANTOPRAZOLE SODIUM
     Indication: PROPHYLAXIS
     Dosage: 40 MG, BID, FORMULATION:PILL
     Route: 048
     Dates: start: 20141209
  9. PRADAXA [Concomitant]
     Active Substance: DABIGATRAN ETEXILATE MESYLATE
     Indication: PULMONARY EMBOLISM
     Dosage: 150 MG, TID
     Route: 048
     Dates: start: 20140630
  10. BECLONEB [Concomitant]
     Indication: NON-SMALL CELL LUNG CANCER
  11. MESULID [Concomitant]
     Active Substance: NIMESULIDE
     Indication: PAIN
     Dosage: TOTAL DAILY DOSE: 100 MG, PRN, FORMULATION: PILL
     Route: 048
     Dates: start: 20141128

REACTIONS (2)
  - Gastrointestinal infection [Recovered/Resolved]
  - Staphylococcal infection [Recovered/Resolved]

NARRATIVE: CASE EVENT DATE: 20150205
